FAERS Safety Report 25892248 (Version 1)
Quarter: 2025Q4

REPORT INFORMATION
  Report Type: Spontaneous
  Country: EU (occurrence: EU)
  Receive Date: 20251007
  Receipt Date: 20251007
  Transmission Date: 20260118
  Serious: Yes (Other)
  Sender: MYLAN
  Company Number: None

PATIENT
  Age: 20 Year
  Sex: Female
  Weight: 60 kg

DRUGS (3)
  1. ZOLPIDEM [Suspect]
     Active Substance: ZOLPIDEM TARTRATE
     Indication: Product used for unknown indication
     Dosage: UNK
     Dates: start: 20220101, end: 20220101
  2. LORAZEPAM [Suspect]
     Active Substance: LORAZEPAM
     Indication: Product used for unknown indication
     Dosage: UNK
     Dates: start: 20220101, end: 20220101
  3. ACETAMINOPHEN [Suspect]
     Active Substance: ACETAMINOPHEN
     Indication: Product used for unknown indication
     Dosage: UNK
     Dates: start: 20220101, end: 20220101

REACTIONS (4)
  - Somnolence [Unknown]
  - Toxicity to various agents [Unknown]
  - Suicide attempt [Unknown]
  - Drug abuse [Unknown]

NARRATIVE: CASE EVENT DATE: 20220101
